FAERS Safety Report 14984516 (Version 3)
Quarter: 2018Q3

REPORT INFORMATION
  Report Type: Spontaneous
  Country: DE (occurrence: DE)
  Receive Date: 20180607
  Receipt Date: 20180712
  Transmission Date: 20181010
  Serious: Yes (Other)
  Sender: FDA-Public Use
  Company Number: DE-OTSUKA-2016_026685

PATIENT
  Age: 50 Year
  Sex: Male

DRUGS (20)
  1. ARIPIPRAZOLE. [Interacting]
     Active Substance: ARIPIPRAZOLE
     Dosage: 10 MG, QD
     Route: 048
     Dates: start: 20150713, end: 20150802
  2. ARIPIPRAZOLE. [Interacting]
     Active Substance: ARIPIPRAZOLE
     Dosage: 5 MG, QD
     Route: 048
     Dates: start: 20150705, end: 20150712
  3. OMEPRAZOLE. [Interacting]
     Active Substance: OMEPRAZOLE
     Indication: HIV INFECTION
     Dosage: 40 MG, QD
     Route: 048
  4. ABILIFY MAINTENA [Suspect]
     Active Substance: ARIPIPRAZOLE
     Dosage: 300 MG, QM
     Route: 030
     Dates: start: 20150831
  5. LOPINAVIR [Interacting]
     Active Substance: LOPINAVIR
     Indication: HIV INFECTION
     Dosage: 100 MG, BID (1DF: 100/400 MG)
     Route: 065
     Dates: start: 2005
  6. SAQUINAVIR [Interacting]
     Active Substance: SAQUINAVIR
     Indication: HIV INFECTION
     Dosage: 1000 MG, BID
     Route: 065
     Dates: start: 2005
  7. SILYBUM MARIANUM EXTRACT [Interacting]
     Active Substance: DIETARY SUPPLEMENT\HERBALS\MILK THISTLE
     Indication: ANXIETY DISORDER
     Dosage: 179.85 MG, QD
     Route: 030
  8. SILYBUM MARIANUM EXTRACT [Interacting]
     Active Substance: DIETARY SUPPLEMENT\HERBALS\MILK THISTLE
     Indication: HIV TEST
     Dosage: UNK
     Route: 065
  9. ARIPIPRAZOLE. [Interacting]
     Active Substance: ARIPIPRAZOLE
     Dosage: 10 MG, QD
     Route: 048
     Dates: start: 20150621, end: 20150705
  10. ABILIFY MAINTENA [Suspect]
     Active Substance: ARIPIPRAZOLE
     Indication: BIPOLAR DISORDER
     Dosage: 200 MG, QM
     Route: 030
     Dates: start: 20150706
  11. ARIPIPRAZOLE. [Suspect]
     Active Substance: ARIPIPRAZOLE
     Indication: BIPOLAR DISORDER
     Dosage: 5 MG, QD
     Route: 048
     Dates: start: 20150606, end: 20150620
  12. ABILIFY MAINTENA [Suspect]
     Active Substance: ARIPIPRAZOLE
     Dosage: 300 MG, QM
     Route: 030
     Dates: start: 20150803
  13. ABILIFY MAINTENA [Suspect]
     Active Substance: ARIPIPRAZOLE
     Dosage: 400 MG, QM
     Route: 030
     Dates: start: 20151026
  14. ABILIFY MAINTENA [Suspect]
     Active Substance: ARIPIPRAZOLE
     Dosage: 400 MG, QM
     Route: 030
     Dates: start: 20151123
  15. RITONAVIR. [Interacting]
     Active Substance: RITONAVIR
     Indication: HIV INFECTION
     Dosage: 400 MG, BID
     Route: 065
     Dates: start: 2005
  16. ABILIFY MAINTENA [Suspect]
     Active Substance: ARIPIPRAZOLE
     Dosage: 400 MG, QM
     Route: 030
     Dates: start: 20150928
  17. SILYBUM MARIANUM EXTRACT [Interacting]
     Active Substance: DIETARY SUPPLEMENT\HERBALS\MILK THISTLE
     Dosage: 180 MG, QD
     Route: 030
  18. ARIPIPRAZOLE. [Interacting]
     Active Substance: ARIPIPRAZOLE
     Dosage: 5 MG, QD
     Route: 048
     Dates: start: 20150803, end: 20150831
  19. ARIPIPRAZOLE. [Interacting]
     Active Substance: ARIPIPRAZOLE
     Dosage: 5 MG, QD
     Route: 048
     Dates: start: 20150831, end: 20150928
  20. ARIPIPRAZOLE. [Interacting]
     Active Substance: ARIPIPRAZOLE
     Dosage: 10 MG, QD
     Route: 048
     Dates: start: 20150803, end: 20150831

REACTIONS (6)
  - Drug level below therapeutic [Unknown]
  - Drug effective for unapproved indication [Unknown]
  - Condition aggravated [Unknown]
  - Drug interaction [Unknown]
  - Bipolar disorder [Unknown]
  - Prescribed underdose [Unknown]
